FAERS Safety Report 4353651-7 (Version None)
Quarter: 2004Q2

REPORT INFORMATION
  Report Type: 
  Country: None (occurrence: None)
  Receive Date: 20040430
  Receipt Date: 20040419
  Transmission Date: 20050107
  Serious: Yes (Other)
  Sender: FDA-Public Use
  Company Number: 2004026614

PATIENT
  Age: 30 Year
  Sex: Female

DRUGS (2)
  1. NEURONTIN [Suspect]
     Indication: ILL-DEFINED DISORDER
     Dosage: 6400 MG (QID), ORAL
     Route: 048
     Dates: start: 20040301
  2. VENLAFAXIEN HYDROCHLORIDE (VENLAFAXINE HYDROCHLORIDE) [Concomitant]

REACTIONS (8)
  - FALL [None]
  - FEELING ABNORMAL [None]
  - HEAD INJURY [None]
  - INCOHERENT [None]
  - LOSS OF CONSCIOUSNESS [None]
  - PANIC REACTION [None]
  - SKIN LACERATION [None]
  - URINARY RETENTION [None]
